FAERS Safety Report 18397330 (Version 1)
Quarter: 2020Q4

REPORT INFORMATION
  Report Type: Spontaneous
  Country: US (occurrence: US)
  Receive Date: 20201016
  Receipt Date: 20201016
  Transmission Date: 20210114
  Serious: No
  Sender: FDA-Public Use
  Company Number: None

PATIENT
  Age: 43 Year
  Sex: Female

DRUGS (1)
  1. MYFORTIC [Suspect]
     Active Substance: MYCOPHENOLATE SODIUM
     Indication: TRANSPLANT
     Route: 048
     Dates: start: 202009

REACTIONS (5)
  - Pyrexia [None]
  - Nausea [None]
  - Lethargy [None]
  - Viral infection [None]
  - Chills [None]

NARRATIVE: CASE EVENT DATE: 20201015
